FAERS Safety Report 20471491 (Version 2)
Quarter: 2022Q1

REPORT INFORMATION
  Report Type: Spontaneous
  Country: US (occurrence: US)
  Receive Date: 20220214
  Receipt Date: 20220307
  Transmission Date: 20220423
  Serious: No
  Sender: FDA-Public Use
  Company Number: US-SA-SAC20220208000371

PATIENT
  Age: 22 Year
  Sex: Female

DRUGS (1)
  1. DUPIXENT [Suspect]
     Active Substance: DUPILUMAB
     Indication: Dermatitis atopic
     Dosage: 300 MG, QOW
     Route: 058
     Dates: start: 20211026

REACTIONS (9)
  - Dry skin [Unknown]
  - Rash pruritic [Unknown]
  - Rash erythematous [Unknown]
  - Eyelid irritation [Unknown]
  - Erythema of eyelid [Unknown]
  - Pruritus [Unknown]
  - Eczema eyelids [Unknown]
  - Dry skin [Unknown]
  - Swelling of eyelid [Unknown]
